FAERS Safety Report 21399943 (Version 13)
Quarter: 2023Q1

REPORT INFORMATION
  Report Type: Report from Study
  Country: PE (occurrence: None)
  Receive Date: 20221002
  Receipt Date: 20230328
  Transmission Date: 20230418
  Serious: Yes (Life-Threatening, Hospitalization, Disabling)
  Sender: FDA-Public Use
  Company Number: PE-ROCHE-3176643

PATIENT
  Age: 49 Year
  Sex: Male
  Weight: 86.2 kg

DRUGS (9)
  1. OCRELIZUMAB [Suspect]
     Active Substance: OCRELIZUMAB
     Indication: Relapsing-remitting multiple sclerosis
     Dosage: HE RECEIVED FURTHER OCRELIZUMAB DOSES ON 05/MAR/2021, 06/AUG/2021, 31/JAN/2022. ON 18/JUL/2022, MOST
     Route: 042
     Dates: start: 20210219
  2. LOSARTAN [Concomitant]
     Active Substance: LOSARTAN
     Indication: Hypertension
     Route: 048
     Dates: start: 20210220
  3. CHOLECALCIFEROL [Concomitant]
     Active Substance: CHOLECALCIFEROL
     Indication: Prophylaxis
     Route: 048
     Dates: start: 202001
  4. FOLIC ACID [Concomitant]
     Active Substance: FOLIC ACID
     Indication: Prophylaxis
     Route: 048
     Dates: start: 2020
  5. BCG VACCINE [Concomitant]
     Active Substance: BCG VACCINE
     Dates: start: 19730316
  6. MEROPENEM [Concomitant]
     Active Substance: MEROPENEM
     Indication: Urinary tract infection
     Route: 042
     Dates: start: 20220815, end: 20220822
  7. RIFOCINA SPRAY [Concomitant]
     Indication: Skin ulcer
     Dosage: 1 OTHER
     Route: 061
     Dates: start: 20230110
  8. RIFOCINA SPRAY [Concomitant]
     Indication: Skin ulcer
     Route: 061
     Dates: start: 20230110
  9. HYDROTHERAPY [Concomitant]
     Indication: Multiple sclerosis
     Route: 065
     Dates: start: 2017

REACTIONS (2)
  - Bone tuberculosis [Recovering/Resolving]
  - Sepsis [Not Recovered/Not Resolved]

NARRATIVE: CASE EVENT DATE: 20220830
